FAERS Safety Report 7645063-5 (Version None)
Quarter: 2011Q3

REPORT INFORMATION
  Report Type: 
  Country: None (occurrence: None)
  Receive Date: 20110729
  Receipt Date: 20110727
  Transmission Date: 20111222
  Serious: Yes (Hospitalization)
  Sender: FDA-Public Use
  Company Number: FR-SANOFI-AVENTIS-2011SA038450

PATIENT
  Age: 92 Year
  Sex: Female

DRUGS (9)
  1. ACETAMINOPHEN [Suspect]
     Route: 048
     Dates: start: 20110513
  2. CACIT VITAMINE D3 [Suspect]
     Indication: OSTEOPOROSIS
     Route: 048
     Dates: start: 20110520
  3. PLAVIX [Suspect]
     Route: 048
     Dates: start: 20110519, end: 20110606
  4. ESOMEPRAZOLE MAGNESIUM [Suspect]
     Indication: GASTRITIS
     Route: 048
     Dates: start: 20110531
  5. DILTIAZEM HCL [Suspect]
     Route: 048
     Dates: start: 20110521
  6. ASPIRIN [Suspect]
     Route: 048
  7. LOVENOX [Suspect]
     Route: 058
     Dates: start: 20110513
  8. UVEDOSE [Suspect]
     Route: 048
     Dates: start: 20110603
  9. MORPHINE SULFATE [Suspect]
     Route: 048
     Dates: start: 20110513

REACTIONS (1)
  - HENOCH-SCHONLEIN PURPURA [None]
